FAERS Safety Report 15791259 (Version 2)
Quarter: 2019Q1

REPORT INFORMATION
  Report Type: Spontaneous
  Country: US (occurrence: US)
  Receive Date: 20190104
  Receipt Date: 20190306
  Transmission Date: 20190417
  Serious: Yes (Hospitalization)
  Sender: FDA-Public Use
  Company Number: US-ALLERGAN-1900197US

PATIENT
  Sex: Female

DRUGS (3)
  1. PROGESTERONE UNK [Suspect]
     Active Substance: PROGESTERONE
     Indication: PREMATURE LABOUR
     Dosage: UNK
     Route: 067
  2. PROGESTERONE UNK [Suspect]
     Active Substance: PROGESTERONE
     Indication: CERVIX DISORDER
  3. PRENATAL VITAMINS [Concomitant]
     Active Substance: VITAMINS
     Route: 065

REACTIONS (4)
  - Premature labour [Unknown]
  - Off label use [Unknown]
  - Autoimmune dermatitis [Recovered/Resolved]
  - Pregnancy [Unknown]
